FAERS Safety Report 7190680-2 (Version None)
Quarter: 2010Q4

REPORT INFORMATION
  Report Type: 
  Country: None (occurrence: None)
  Receive Date: 20101223
  Receipt Date: 20101215
  Transmission Date: 20110411
  Serious: Yes (Hospitalization)
  Sender: FDA-Public Use
  Company Number: GR-TEVA-260409ISR

PATIENT
  Sex: Male

DRUGS (8)
  1. PREDNISOLONE (ABIRATERONE ACETATE COMPARATOR) [Suspect]
     Indication: PROSTATE CANCER METASTATIC
     Route: 048
     Dates: start: 20090922
  2. ABIRATERONE ACETATE- BLINDED (ABIRATERONE ACETATE) / PLACEBO [Suspect]
     Indication: PROSTATE CANCER METASTATIC
     Route: 048
     Dates: start: 20091222
  3. TIOTROPIUM [Concomitant]
     Route: 055
     Dates: start: 19940101
  4. LANSOPRAZOLE [Concomitant]
     Indication: GASTROINTESTINAL DISORDER THERAPY
     Route: 048
     Dates: start: 20080101
  5. BUDESONIDE [Concomitant]
     Indication: CHRONIC OBSTRUCTIVE PULMONARY DISEASE
     Route: 055
     Dates: start: 19940101
  6. PARACETAMOL [Concomitant]
     Indication: ARTHRALGIA
     Route: 048
     Dates: start: 20091210
  7. TRIPTORELIN [Concomitant]
     Indication: PROSTATE CANCER
     Route: 030
     Dates: start: 20091222
  8. TRIPTORELIN [Concomitant]
     Indication: HORMONE THERAPY

REACTIONS (1)
  - VOMITING [None]
